FAERS Safety Report 5702992-7 (Version None)
Quarter: 2008Q2

REPORT INFORMATION
  Report Type: 
  Country: None (occurrence: None)
  Receive Date: 20080408
  Receipt Date: 20080326
  Transmission Date: 20081010
  Serious: Yes (Hospitalization)
  Sender: FDA-Public Use
  Company Number: 232930J08USA

PATIENT
  Age: 57 Year
  Sex: Female
  Weight: 108.8633 kg

DRUGS (1)
  1. REBIF [Suspect]
     Indication: MULTIPLE SCLEROSIS
     Dosage: 44 MCG, 3 IN 1 WEEKS, SUBCUTANEOUS
     Route: 058
     Dates: start: 20040922

REACTIONS (4)
  - PNEUMONIA [None]
  - SLEEP APNOEA SYNDROME [None]
  - URINARY TRACT INFECTION [None]
  - VAGINAL HAEMORRHAGE [None]
